FAERS Safety Report 21853062 (Version 1)
Quarter: 2023Q1

REPORT INFORMATION
  Report Type: Other
  Country: None (occurrence: US)
  Receive Date: 20230112
  Receipt Date: 20230112
  Transmission Date: 20230418
  Serious: No
  Sender: FDA-Public Use
  Company Number: US-Mission Pharmacal Company-2136643

PATIENT
  Age: 74 Year
  Sex: Female

DRUGS (9)
  1. POTASSIUM CITRATE [Suspect]
     Active Substance: POTASSIUM CITRATE
     Indication: Nephrolithiasis
     Route: 048
  2. THIOLA EC [Concomitant]
     Active Substance: TIOPRONIN
     Route: 048
     Dates: start: 20210423
  3. AMBIEN [Concomitant]
     Active Substance: ZOLPIDEM TARTRATE
  4. AMITRIPTYLINE [Concomitant]
     Active Substance: AMITRIPTYLINE
  5. ATORVASTATIN [Concomitant]
     Active Substance: ATORVASTATIN
  6. BUPROPION [Concomitant]
     Active Substance: BUPROPION
  7. ESOMEPRAZOLE. [Concomitant]
     Active Substance: ESOMEPRAZOLE MAGNESIUM
  8. LEVOTHYROXINE [Concomitant]
     Active Substance: LEVOTHYROXINE
  9. LISINOPRIL AND HYDROCHLOROTHIAZIDE [Concomitant]
     Active Substance: HYDROCHLOROTHIAZIDE\LISINOPRIL

REACTIONS (2)
  - Nephrectomy [Unknown]
  - Nephroureterectomy [Unknown]

NARRATIVE: CASE EVENT DATE: 20221220
